FAERS Safety Report 9809017 (Version 1)
Quarter: 2014Q1

REPORT INFORMATION
  Report Type: Spontaneous
  Country: US (occurrence: US)
  Receive Date: 20140110
  Receipt Date: 20140110
  Transmission Date: 20141002
  Serious: Yes (Death)
  Sender: FDA-Public Use
  Company Number: US-PFIZER INC-2014005299

PATIENT
  Age: 45 Year
  Sex: Female

DRUGS (4)
  1. OXYCODONE HYDROCHLORIDE [Suspect]
     Dosage: UNK
  2. MIDAZOLAM [Suspect]
     Dosage: UNK
  3. DIAZEPAM [Suspect]
     Dosage: UNK
  4. MARIJUANA [Suspect]
     Dosage: UNK

REACTIONS (1)
  - Completed suicide [Fatal]
